FAERS Safety Report 11275566 (Version 1)
Quarter: 2015Q3

REPORT INFORMATION
  Report Type: Spontaneous
  Country: US (occurrence: US)
  Receive Date: 20150716
  Receipt Date: 20150716
  Transmission Date: 20151125
  Serious: Yes (Hospitalization, Other)
  Sender: FDA-Public Use
  Company Number: US-JNJFOC-20150705244

PATIENT
  Sex: Male
  Weight: 99.79 kg

DRUGS (1)
  1. DURAGESIC [Suspect]
     Active Substance: FENTANYL
     Indication: PRODUCT USED FOR UNKNOWN INDICATION
     Route: 062
     Dates: start: 2013, end: 2015

REACTIONS (7)
  - Mental status changes [Not Recovered/Not Resolved]
  - Surgery [Unknown]
  - Melaena [Unknown]
  - Abnormal loss of weight [Unknown]
  - Decreased appetite [Recovering/Resolving]
  - Adverse drug reaction [Unknown]
  - Hospitalisation [Not Recovered/Not Resolved]

NARRATIVE: CASE EVENT DATE: 2015
